FAERS Safety Report 10181779 (Version 2)
Quarter: 2014Q2

REPORT INFORMATION
  Report Type: Spontaneous
  Country: DK (occurrence: DK)
  Receive Date: 20140519
  Receipt Date: 20140519
  Transmission Date: 20141212
  Serious: Yes (Other)
  Sender: FDA-Public Use
  Company Number: DK-ABBVIE-13P-044-1115332-00

PATIENT
  Sex: Female

DRUGS (11)
  1. HUMIRA [Suspect]
     Indication: PSORIATIC ARTHROPATHY
     Route: 058
     Dates: start: 2004, end: 2007
  2. REMICADE [Suspect]
     Indication: PSORIATIC ARTHROPATHY
     Dates: start: 20090929
  3. ORENCIA [Suspect]
     Indication: PSORIATIC ARTHROPATHY
     Route: 042
     Dates: start: 200808, end: 200809
  4. MABTHERA [Suspect]
     Indication: PSORIATIC ARTHROPATHY
     Dosage: 3 INFUSIONS GIVEN
     Route: 042
     Dates: start: 2007, end: 2007
  5. CENTYL MED KALIUMKLORID [Concomitant]
     Indication: PRODUCT USED FOR UNKNOWN INDICATION
  6. ARAVA [Concomitant]
     Indication: PRODUCT USED FOR UNKNOWN INDICATION
     Dates: start: 201101
  7. METEX [Concomitant]
     Indication: PRODUCT USED FOR UNKNOWN INDICATION
     Dates: start: 2009
  8. PANODIL [Concomitant]
     Indication: PRODUCT USED FOR UNKNOWN INDICATION
  9. ROACTEMRA [Concomitant]
     Indication: PRODUCT USED FOR UNKNOWN INDICATION
     Dosage: GIVEN 5 TIMES WITH 4 WEEKS INBETWEEN
     Dates: start: 20090507
  10. TRAMADOL [Concomitant]
     Indication: PRODUCT USED FOR UNKNOWN INDICATION
  11. ENALAPRIL [Concomitant]
     Indication: PRODUCT USED FOR UNKNOWN INDICATION

REACTIONS (1)
  - Chondrosarcoma [Recovered/Resolved]
